FAERS Safety Report 8553706-7 (Version None)
Quarter: 2012Q3

REPORT INFORMATION
  Report Type: 
  Country: None (occurrence: None)
  Receive Date: 20120731
  Receipt Date: 20120726
  Transmission Date: 20120928
  Serious: Yes (Other)
  Sender: FDA-Public Use
  Company Number: GB-PFIZER INC-2012180847

PATIENT
  Age: 59 Year
  Sex: Male
  Weight: 102.51 kg

DRUGS (5)
  1. AMLODIPINE [Concomitant]
     Dosage: 10 MG, UNK
  2. DOXAZOSIN MESYLATE [Suspect]
     Indication: HYPERTENSION
     Dosage: 12 MG, 1X/DAY
     Dates: start: 20120623
  3. FUROSEMIDE [Concomitant]
     Dosage: 40 MG, UNK
  4. DOXAZOSIN MESYLATE [Suspect]
     Dosage: 4 MG, 1X/DAY
     Dates: start: 20120312
  5. NEBIVOLOL [Concomitant]
     Dosage: 5 MG, UNK

REACTIONS (3)
  - NASOPHARYNGITIS [None]
  - PALPITATIONS [None]
  - DRUG INEFFECTIVE [None]
